FAERS Safety Report 11702298 (Version 1)
Quarter: 2015Q4

REPORT INFORMATION
  Report Type: Spontaneous
  Country: US (occurrence: US)
  Receive Date: 20151105
  Receipt Date: 20151105
  Transmission Date: 20160304
  Serious: Yes (Hospitalization, Disabling, Other)
  Sender: FDA-Public Use
  Company Number: US-009507513-0706USA03505

PATIENT
  Sex: Female

DRUGS (2)
  1. CARDIZEM [Concomitant]
     Active Substance: DILTIAZEM HYDROCHLORIDE
     Dates: start: 1992
  2. FOSAMAX [Suspect]
     Active Substance: ALENDRONATE SODIUM
     Indication: OSTEOPOROSIS
     Dosage: 35 MG, QW
     Route: 048
     Dates: start: 200009, end: 2007

REACTIONS (12)
  - Arthropathy [Unknown]
  - Gastrointestinal tract adenoma [Unknown]
  - Arthropathy [Unknown]
  - Hysterectomy [Unknown]
  - Femur fracture [Not Recovered/Not Resolved]
  - Contusion [Unknown]
  - Infection [Unknown]
  - Abscess [Unknown]
  - Osteonecrosis of jaw [Unknown]
  - Femur fracture [Not Recovered/Not Resolved]
  - Herpes zoster [Unknown]
  - Increased tendency to bruise [Unknown]

NARRATIVE: CASE EVENT DATE: 200110
